FAERS Safety Report 6641570-2 (Version None)
Quarter: 2010Q1

REPORT INFORMATION
  Report Type: 
  Country: None (occurrence: None)
  Receive Date: 20100317
  Receipt Date: 20100317
  Transmission Date: 20100710
  Serious: Yes (Hospitalization, Other)
  Sender: FDA-Public Use
  Company Number: None

PATIENT
  Age: 58 Year
  Sex: Male
  Weight: 96.7 kg

DRUGS (12)
  1. ALTEPLASE [Suspect]
     Indication: CEREBROVASCULAR ACCIDENT
     Dosage: 90 MG ONCE IV
     Route: 042
     Dates: start: 20100130
  2. AMLODIPINE [Concomitant]
  3. ASPIRIN [Concomitant]
  4. CARVEDILOL [Concomitant]
  5. CLONIDINE [Concomitant]
  6. LISINOPRIL [Concomitant]
  7. CLOPIDOGREL [Concomitant]
  8. SIMVASTATIN [Concomitant]
  9. FLUOXETINE [Concomitant]
  10. FOLIC ACID [Concomitant]
  11. FUROSEMIDE [Concomitant]
  12. MAGOX [Concomitant]

REACTIONS (6)
  - GRAND MAL CONVULSION [None]
  - HAEMOGLOBIN DECREASED [None]
  - HAEMORRHAGE [None]
  - INCORRECT DRUG ADMINISTRATION RATE [None]
  - PULMONARY HAEMORRHAGE [None]
  - VOMITING [None]
